FAERS Safety Report 25368971 (Version 1)
Quarter: 2025Q2

REPORT INFORMATION
  Report Type: Spontaneous
  Country: AT (occurrence: AT)
  Receive Date: 20250528
  Receipt Date: 20250528
  Transmission Date: 20250716
  Serious: Yes (Other)
  Sender: ALEXION PHARMACEUTICALS
  Company Number: None

PATIENT
  Age: 46 Year

DRUGS (1)
  1. ROSUVASTATIN [Suspect]
     Active Substance: ROSUVASTATIN
     Indication: Hypercholesterolaemia

REACTIONS (3)
  - Rectal haemorrhage [Recovered/Resolved]
  - Rectal discharge [Not Recovered/Not Resolved]
  - Change of bowel habit [Not Recovered/Not Resolved]
